FAERS Safety Report 24683988 (Version 1)
Quarter: 2024Q4

REPORT INFORMATION
  Report Type: Spontaneous
  Country: US (occurrence: US)
  Receive Date: 20241202
  Receipt Date: 20241202
  Transmission Date: 20250115
  Serious: No
  Sender: BRISTOL-MYERS SQUIBB COMPANY
  Company Number: US-BRISTOL-MYERS SQUIBB COMPANY-2024-187204

PATIENT
  Age: 85 Year
  Sex: Male
  Weight: 72.57 kg

DRUGS (3)
  1. REVLIMID [Suspect]
     Active Substance: LENALIDOMIDE
     Indication: Plasma cell myeloma
     Route: 048
  2. ASPIRIN [Concomitant]
     Active Substance: ASPIRIN
     Indication: Product used for unknown indication
  3. DULCOLAX (BISACODYL) [Concomitant]
     Active Substance: BISACODYL
     Indication: Product used for unknown indication

REACTIONS (1)
  - Constipation [Unknown]
